FAERS Safety Report 5863307-7 (Version None)
Quarter: 2008Q3

REPORT INFORMATION
  Report Type: 
  Country: None (occurrence: None)
  Receive Date: 20080828
  Receipt Date: 20080818
  Transmission Date: 20090109
  Serious: Yes (Disabling, Other)
  Sender: FDA-Public Use
  Company Number: US-PFIZER INC-2008068843

PATIENT
  Age: 47 Year
  Sex: Female
  Weight: 95.3 kg

DRUGS (1)
  1. ZOLOFT [Suspect]
     Indication: DEPRESSION
     Dates: start: 20080301, end: 20080801

REACTIONS (3)
  - DRY EYE [None]
  - EYE PAIN [None]
  - LACRIMAL DISORDER [None]
